FAERS Safety Report 21093653 (Version 1)
Quarter: 2022Q3

REPORT INFORMATION
  Report Type: Spontaneous
  Country: US (occurrence: None)
  Receive Date: 20220715
  Receipt Date: 20220715
  Transmission Date: 20221027
  Serious: No
  Sender: FDA-Public Use
  Company Number: None

PATIENT
  Age: 64 Year
  Sex: Female

DRUGS (16)
  1. AMBRISENTAN [Suspect]
     Active Substance: AMBRISENTAN
     Indication: Pulmonary arterial hypertension
     Dosage: FREQUENCY : DAILY;?
     Route: 048
     Dates: start: 20190430
  2. TADALAFIL [Concomitant]
  3. ALESCO HFA [Concomitant]
  4. BIKTARVY [Concomitant]
  5. WARFARIN [Concomitant]
  6. CLOACE [Concomitant]
  7. MIRALAX [Concomitant]
  8. TYLENOL [Concomitant]
  9. LASIX [Concomitant]
  10. K-TAB [Concomitant]
  11. FERROUS SULFATE [Concomitant]
  12. AMLODIPINE [Concomitant]
  13. PANTOPRAZOLE [Concomitant]
  14. ESTRADIOL VAG CREAM [Concomitant]
  15. ALBUTEROL HFA [Concomitant]
  16. VITAMIN C [Concomitant]
     Dosage: FREQUENCY : DAILY;?
     Route: 048
     Dates: start: 20190430

REACTIONS (1)
  - Vaginal prolapse [None]

NARRATIVE: CASE EVENT DATE: 20220711
